FAERS Safety Report 9843421 (Version 1)
Quarter: 2013Q4

REPORT INFORMATION
  Report Type: Spontaneous
  Country: US (occurrence: None)
  Receive Date: 20131219
  Receipt Date: 20131219
  Transmission Date: 20140711
  Serious: Yes (Hospitalization)
  Sender: FDA-Public Use
  Company Number: 163-20785-13074616

PATIENT
  Age: 71 Year
  Sex: Female
  Weight: 71.22 kg

DRUGS (3)
  1. THALOMID (THALIDOMIDE) (100 MILLIGRAM, CAPSULES) [Suspect]
     Indication: PLASMA CELL MYELOMA
     Dosage: 1 IN 1 D
     Route: 048
     Dates: start: 200702, end: 20130724
  2. INACTIVE THYROID MEDICTION [Concomitant]
  3. BLOOD PRESSURE [Concomitant]

REACTIONS (3)
  - Clostridium difficile infection [None]
  - Plasma cell myeloma [None]
  - Drug ineffective [None]
